FAERS Safety Report 5550051-9 (Version None)
Quarter: 2007Q4

REPORT INFORMATION
  Report Type: 
  Country: None (occurrence: None)
  Receive Date: 20071128
  Receipt Date: 20070131
  Transmission Date: 20080405
  Serious: Yes (Other)
  Sender: FDA-Public Use
  Company Number: 2007008185

PATIENT
  Age: 53 Year
  Sex: Male
  Weight: 102.1 kg

DRUGS (3)
  1. LIPITOR [Suspect]
     Indication: BLOOD CHOLESTEROL INCREASED
     Dosage: 10 MG (10 MG,1 IN 1 D)
     Dates: start: 20061001, end: 20061218
  2. AVAPRO [Concomitant]
  3. LOMOTIL [Concomitant]

REACTIONS (1)
  - HEPATIC ENZYME INCREASED [None]
